FAERS Safety Report 8405969-6 (Version None)
Quarter: 2012Q2

REPORT INFORMATION
  Report Type: 
  Country: None (occurrence: None)
  Receive Date: 20120529
  Receipt Date: 20000512
  Transmission Date: 20120825
  Serious: Yes (Hospitalization, Other)
  Sender: FDA-Public Use
  Company Number: 02100-JPN-00-0035

PATIENT
  Age: 81 Year
  Sex: Male

DRUGS (3)
  1. UFT [Suspect]
     Indication: GASTRIC CANCER
     Dates: start: 19990607
  2. UFT [Suspect]
     Indication: POSTOPERATIVE CARE
     Dates: start: 19990607
  3. PLETAL [Suspect]
     Indication: PERIPHERAL ARTERIAL OCCLUSIVE DISEASE
     Dosage: 1 DF, BID, ORAL
     Route: 048
     Dates: start: 19961025, end: 20000511

REACTIONS (5)
  - BLOOD LACTATE DEHYDROGENASE INCREASED [None]
  - MELAENA [None]
  - THROMBOCYTOPENIC PURPURA [None]
  - GASTRIC CANCER [None]
  - DRUG INEFFECTIVE [None]
